FAERS Safety Report 5215866-5 (Version None)
Quarter: 2007Q1

REPORT INFORMATION
  Report Type: 
  Country: None (occurrence: None)
  Receive Date: 20070123
  Receipt Date: 20070118
  Transmission Date: 20070707
  Serious: Yes (Hospitalization)
  Sender: FDA-Public Use
  Company Number: JP-JPN-A200700106

PATIENT
  Age: 40 Year
  Sex: Female
  Weight: 59 kg

DRUGS (4)
  1. PAXIL [Suspect]
     Indication: DEPRESSION
     Route: 048
     Dates: start: 20061001
  2. MYSLEE [Concomitant]
     Route: 048
     Dates: start: 20061225
  3. DEPROMEL [Concomitant]
     Dosage: 100MG PER DAY
     Route: 048
     Dates: start: 20070109
  4. CALMDOWN [Concomitant]
     Dosage: 1.6MG PER DAY
     Route: 048
     Dates: start: 20070109

REACTIONS (10)
  - AGGRESSION [None]
  - AGITATION [None]
  - BULIMIA NERVOSA [None]
  - CHILD NEGLECT [None]
  - CONFUSIONAL STATE [None]
  - DEPRESSED LEVEL OF CONSCIOUSNESS [None]
  - ILL-DEFINED DISORDER [None]
  - LOGORRHOEA [None]
  - SOLILOQUY [None]
  - SOMNOLENCE [None]
